FAERS Safety Report 6750261-9 (Version None)
Quarter: 2010Q2

REPORT INFORMATION
  Report Type: 
  Country: None (occurrence: None)
  Receive Date: 20100601
  Receipt Date: 20100521
  Transmission Date: 20101027
  Serious: Yes (Death)
  Sender: FDA-Public Use
  Company Number: CN-PFIZER INC-2010061949

PATIENT
  Age: 42 Year
  Sex: Female
  Weight: 65 kg

DRUGS (7)
  1. SULPERAZON [Suspect]
     Indication: INFECTION
     Dosage: 1.0 G, 3X/DAY
     Route: 042
     Dates: start: 20100515
  2. NORVANCOMYCIN [Concomitant]
     Indication: ANTIINFLAMMATORY THERAPY
     Dosage: 400 MG, 3X/DAY
     Dates: start: 20100508, end: 20100501
  3. NORVANCOMYCIN [Concomitant]
     Dosage: 800 MG, 2X/DAY
     Dates: start: 20100510, end: 20100501
  4. LEVOFLOXACIN [Concomitant]
     Dosage: UNK
     Dates: start: 20100508, end: 20100501
  5. MEROPENEM [Concomitant]
     Indication: ANTIINFLAMMATORY THERAPY
     Dosage: 0.5 G, 3X/DAY
     Dates: start: 20100510, end: 20100501
  6. COARTEM [Concomitant]
     Indication: MALARIA
     Dosage: 160 MG, 1X/DAY
     Dates: start: 20100513, end: 20100513
  7. VANCOMYCIN [Concomitant]
     Indication: ANTIINFLAMMATORY THERAPY
     Dosage: UNK
     Route: 042
     Dates: start: 20100515

REACTIONS (1)
  - ANAPHYLACTIC SHOCK [None]
